FAERS Safety Report 6256319-5 (Version None)
Quarter: 2009Q3

REPORT INFORMATION
  Report Type: 
  Country: None (occurrence: None)
  Receive Date: 20090706
  Receipt Date: 20090625
  Transmission Date: 20100115
  Serious: Yes (Other)
  Sender: FDA-Public Use
  Company Number: US-TYCO HEALTHCARE/MALLINCKRODT-T200901283

PATIENT
  Sex: Male

DRUGS (1)
  1. OPTIRAY 350 [Suspect]
     Indication: SCAN
     Dosage: 100 ML, SINGLE
     Route: 042

REACTIONS (4)
  - ANAPHYLACTIC REACTION [None]
  - HYPOXIA [None]
  - LARYNGEAL OEDEMA [None]
  - SWELLING FACE [None]
